FAERS Safety Report 8033772-8 (Version None)
Quarter: 2012Q1

REPORT INFORMATION
  Report Type: 
  Country: None (occurrence: None)
  Receive Date: 20120110
  Receipt Date: 20120105
  Transmission Date: 20120608
  Serious: Yes (Other)
  Sender: FDA-Public Use
  Company Number: US-PFIZER INC-2012004543

PATIENT
  Sex: Male

DRUGS (2)
  1. DILANTIN-125 [Suspect]
     Dosage: UNK
  2. PHENOBARBITAL TAB [Suspect]
     Indication: CONVULSION
     Dosage: UNK

REACTIONS (2)
  - CONVULSION [None]
  - GINGIVAL BLEEDING [None]
